FAERS Safety Report 4698301-5 (Version None)
Quarter: 2005Q2

REPORT INFORMATION
  Report Type: 
  Country: None (occurrence: None)
  Receive Date: 20050621
  Receipt Date: 20050606
  Transmission Date: 20051028
  Serious: Yes (Other)
  Sender: FDA-Public Use
  Company Number: S05-UKI-02036-01

PATIENT
  Age: 51 Year
  Sex: Male

DRUGS (14)
  1. CITALOPRAM HYDROBROMIDE [Suspect]
     Dosage: 20 MG QD PO
     Route: 048
     Dates: start: 20050101, end: 20050501
  2. CITALOPRAM HYDROBROMIDE [Suspect]
     Dosage: 30 MG QD PO
     Route: 048
     Dates: start: 20050501
  3. DILTIAZEM HYDROCHLORIDE [Suspect]
     Dosage: 400 MG QD PO
     Route: 048
     Dates: end: 20050501
  4. ATENOLOL [Suspect]
     Dosage: 100 MG QD PO
     Route: 048
     Dates: end: 20050501
  5. SANDO K (POTASSIUM CHLORIDE) [Suspect]
     Dosage: 1 UNK TID PO
     Route: 048
     Dates: end: 20050501
  6. ENALAPRIL MALEATE [Suspect]
     Dosage: 40 MG QD PO
     Route: 048
     Dates: end: 20050501
  7. ENALAPRIL MALEATE [Suspect]
     Dosage: 5 MG BID PO
     Route: 048
     Dates: start: 20050101
  8. ZOPICLONE [Concomitant]
  9. SIMVASTATIN [Concomitant]
  10. LANSOPRAZOLE [Concomitant]
  11. NICORANDIL [Concomitant]
  12. VITAMIN B COMPLEX CAP [Concomitant]
  13. THIAMINE [Concomitant]
  14. GLICLAZIDE [Concomitant]

REACTIONS (4)
  - ATRIOVENTRICULAR BLOCK [None]
  - BRADYCARDIA [None]
  - HYPERKALAEMIA [None]
  - RENAL IMPAIRMENT [None]
